FAERS Safety Report 23663378 (Version 1)
Quarter: 2024Q1

REPORT INFORMATION
  Report Type: Report from Study
  Country: US (occurrence: US)
  Receive Date: 20240322
  Receipt Date: 20240322
  Transmission Date: 20240410
  Serious: Yes (Other)
  Sender: FDA-Public Use
  Company Number: US-ABBVIE-5679176

PATIENT
  Age: 81 Year
  Sex: Female

DRUGS (1)
  1. VENCLEXTA [Suspect]
     Active Substance: VENETOCLAX
     Indication: Acute myeloid leukaemia
     Route: 048
     Dates: start: 20240314

REACTIONS (5)
  - Pulmonary oedema [Unknown]
  - Cough [Recovered/Resolved]
  - Swelling [Recovered/Resolved]
  - Stress [Recovered/Resolved]
  - Multiple allergies [Unknown]

NARRATIVE: CASE EVENT DATE: 20240301
